FAERS Safety Report 7978234-9 (Version None)
Quarter: 2011Q4

REPORT INFORMATION
  Report Type: 
  Country: None (occurrence: None)
  Receive Date: 20111214
  Receipt Date: 20111209
  Transmission Date: 20120403
  Serious: Yes (Other)
  Sender: FDA-Public Use
  Company Number: US-PFIZER INC-2011301147

PATIENT
  Sex: Female
  Weight: 90.703 kg

DRUGS (3)
  1. CELEBREX [Suspect]
     Indication: ARTHRITIS
  2. CELEBREX [Suspect]
     Indication: SPONDYLITIS
     Dosage: 200 MG, 1X/DAY
     Route: 048
     Dates: start: 19970101
  3. CELEBREX [Suspect]
     Indication: BURSITIS

REACTIONS (2)
  - BLOOD PRESSURE ABNORMAL [None]
  - TRANSIENT ISCHAEMIC ATTACK [None]
